FAERS Safety Report 22541649 (Version 1)
Quarter: 2023Q2

REPORT INFORMATION
  Report Type: Spontaneous
  Country: US (occurrence: None)
  Receive Date: 20230608
  Receipt Date: 20230608
  Transmission Date: 20230721
  Serious: No
  Sender: FDA-Public Use
  Company Number: None

PATIENT
  Age: 51 Year
  Sex: Female
  Weight: 61.9 kg

DRUGS (1)
  1. MIRCERA [Suspect]
     Active Substance: METHOXY POLYETHYLENE GLYCOL-EPOETIN BETA
     Indication: Anaemia
     Dosage: FREQUENCY : EVERY OTHER WEEK;?
     Route: 042
     Dates: start: 20230508, end: 20230607

REACTIONS (5)
  - Feeling hot [None]
  - Blood pressure increased [None]
  - Unresponsive to stimuli [None]
  - Agonal respiration [None]
  - Pulse absent [None]

NARRATIVE: CASE EVENT DATE: 20230607
